FAERS Safety Report 10687715 (Version 3)
Quarter: 2015Q1

REPORT INFORMATION
  Report Type: Spontaneous
  Country: US (occurrence: US)
  Receive Date: 20150102
  Receipt Date: 20150218
  Transmission Date: 20150720
  Serious: Yes (Death, Hospitalization, Other)
  Sender: FDA-Public Use
  Company Number: US-ASTELLAS-2014US021810

PATIENT
  Age: 71 Year
  Sex: Male

DRUGS (1)
  1. XTANDI [Suspect]
     Active Substance: ENZALUTAMIDE
     Indication: PROSTATE CANCER
     Route: 048
     Dates: start: 201403, end: 201407

REACTIONS (9)
  - Anaemia [Unknown]
  - Thrombocytopenia [Unknown]
  - Lung infiltration [Unknown]
  - Prostate cancer stage IV [Fatal]
  - Anxiety [Unknown]
  - Abscess [Unknown]
  - Disease progression [Fatal]
  - Chronic obstructive pulmonary disease [Unknown]
  - Pain [Unknown]

NARRATIVE: CASE EVENT DATE: 201410
